FAERS Safety Report 4423164-2 (Version None)
Quarter: 2004Q3

REPORT INFORMATION
  Report Type: 
  Country: None (occurrence: None)
  Receive Date: 20040811
  Receipt Date: 20040730
  Transmission Date: 20050211
  Serious: Yes (Death)
  Sender: FDA-Public Use
  Company Number: JP-ROCHE-376269

PATIENT
  Age: 70 Year
  Sex: Male

DRUGS (6)
  1. TICLOPIDINE HCL [Suspect]
     Dosage: FURTHER INDICATIONS FOR USE WERE OLD MYOCARDIAL INFARCTION, ANGINA PECTORIS AND PROPHYLAXIS OF THRO+
     Route: 048
     Dates: start: 20040621, end: 20040718
  2. ASPIRIN [Suspect]
     Indication: DRUG USE FOR UNKNOWN INDICATION
     Route: 048
  3. ENALAPRIL MALEATE [Suspect]
     Indication: DRUG USE FOR UNKNOWN INDICATION
     Route: 048
  4. FRANDOL [Suspect]
     Indication: DRUG USE FOR UNKNOWN INDICATION
     Dosage: DRUG NAME STATED AS FRANDOL S.
     Route: 046
  5. NORVASC [Suspect]
     Indication: DRUG USE FOR UNKNOWN INDICATION
     Route: 048
  6. CYANOCOBALAMIN [Suspect]
     Indication: DRUG USE FOR UNKNOWN INDICATION
     Route: 065

REACTIONS (1)
  - LEUKOPENIA [None]
